FAERS Safety Report 16666308 (Version 2)
Quarter: 2019Q3

REPORT INFORMATION
  Report Type: Report from Study
  Country: None (occurrence: AR)
  Receive Date: 20190805
  Receipt Date: 20190916
  Transmission Date: 20191004
  Serious: Yes (Other)
  Sender: FDA-Public Use
  Company Number: AR-ABBVIE-19K-007-2876497-00

PATIENT
  Sex: Female

DRUGS (1)
  1. HUMIRA [Suspect]
     Active Substance: ADALIMUMAB
     Indication: RHEUMATOID ARTHRITIS
     Route: 058
     Dates: start: 20141212

REACTIONS (4)
  - Device dislocation [Recovered/Resolved]
  - Rheumatoid arthritis [Recovered/Resolved]
  - Medical device implantation [Unknown]
  - Purulent discharge [Recovered/Resolved]
